FAERS Safety Report 11458113 (Version 2)
Quarter: 2015Q3

REPORT INFORMATION
  Report Type: Spontaneous
  Country: US (occurrence: None)
  Receive Date: 20150904
  Receipt Date: 20150916
  Transmission Date: 20151125
  Serious: Yes (Life-Threatening, Hospitalization, Other)
  Sender: FDA-Public Use
  Company Number: ADR-2015-01497

PATIENT
  Age: 41 Year
  Sex: Male

DRUGS (2)
  1. MORPHINE INTRATHECAL 2.5UNITS/ML [Suspect]
     Active Substance: MORPHINE
     Dosage: 0.4742 UNITS/DAY SEE B
  2. COMPOUNDED BACLOFEN INTRATHECAL 2000MCG/ML [Suspect]
     Active Substance: BACLOFEN
     Dosage: 379.3MCG/DAY SEE B5

REACTIONS (2)
  - Respiratory distress [None]
  - Respiratory depression [None]
